FAERS Safety Report 8594385 (Version 2)
Quarter: 2013Q3

REPORT INFORMATION
  Report Type: Spontaneous
  Country: US (occurrence: US)
  Receive Date: 20120604
  Receipt Date: 20130702
  Transmission Date: 20140515
  Serious: Yes (Hospitalization, Congenital Anomaly, Other)
  Sender: FDA-Public Use
  Company Number: US-PFIZER INC-2012128709

PATIENT
  Sex: Male
  Weight: 2.8 kg

DRUGS (8)
  1. ZOLOFT [Suspect]
     Indication: DEPRESSION
     Dosage: 50 MG, DAILY
     Route: 064
     Dates: start: 20060427
  2. ZOLOFT [Suspect]
     Dosage: 100 MG,DAILY
     Route: 064
     Dates: start: 20070206
  3. PRENATAL VITAMINS [Concomitant]
     Dosage: DAILY
     Route: 064
  4. FLONASE [Concomitant]
     Dosage: TWO SPARYS IN EACH NOSTRIL DAILY
     Route: 064
  5. LORATADINE [Concomitant]
     Dosage: 10 MG, DAILY
     Route: 064
  6. IRON [Concomitant]
     Dosage: UNK, ONE TABLET DAILY
     Route: 064
  7. CLARITIN [Concomitant]
     Dosage: UNK
     Route: 064
  8. MAGNESIUM [Concomitant]
     Dosage: 27 MG, DAILY
     Route: 064

REACTIONS (31)
  - Maternal exposure timing unspecified [Unknown]
  - Cryptorchism [Unknown]
  - Cleft palate [Unknown]
  - Talipes [Unknown]
  - Coarctation of the aorta [Unknown]
  - Patent ductus arteriosus [Unknown]
  - Laryngeal stenosis [Unknown]
  - Pulmonary oedema [Unknown]
  - Neonatal respiratory distress syndrome [Unknown]
  - Atrial septal defect [Unknown]
  - Micrognathia [Unknown]
  - Dysmorphism [Unknown]
  - Hypertension neonatal [Unknown]
  - Cardiac failure [Unknown]
  - Nephrolithiasis [Unknown]
  - Hydronephrosis [Unknown]
  - Right atrial dilatation [Unknown]
  - Pierre Robin syndrome [Unknown]
  - CHARGE syndrome [Unknown]
  - Congenital central nervous system anomaly [Unknown]
  - Spine malformation [Unknown]
  - Ear malformation [Unknown]
  - Trisomy 21 [Unknown]
  - Aorta hypoplasia [Unknown]
  - Chordee [Unknown]
  - Glossoptosis [Unknown]
  - Failure to thrive [Unknown]
  - Developmental delay [Unknown]
  - Right ventricular hypertrophy [Unknown]
  - Gastrooesophageal reflux disease [Unknown]
  - Visual impairment [Unknown]
